FAERS Safety Report 24617772 (Version 2)
Quarter: 2024Q4

REPORT INFORMATION
  Report Type: Report from Study
  Country: US (occurrence: US)
  Receive Date: 20241114
  Receipt Date: 20241231
  Transmission Date: 20250114
  Serious: Yes (Hospitalization, Other)
  Sender: ABBVIE
  Company Number: US-ABBVIE-6000756

PATIENT
  Age: 82 Year
  Sex: Female

DRUGS (2)
  1. SKYRIZI [Suspect]
     Active Substance: RISANKIZUMAB-RZAA
     Indication: Psoriasis
     Route: 058
     Dates: end: 20241015
  2. SKYRIZI [Suspect]
     Active Substance: RISANKIZUMAB-RZAA
     Route: 058

REACTIONS (9)
  - Sepsis [Recovering/Resolving]
  - Urinary tract infection [Unknown]
  - Cerebrovascular accident [Recovering/Resolving]
  - Transcatheter aortic valve implantation [Unknown]
  - Psoriasis [Unknown]
  - Fatigue [Unknown]
  - Liver disorder [Unknown]
  - Spleen disorder [Unknown]
  - Asthenia [Unknown]

NARRATIVE: CASE EVENT DATE: 20240101
